FAERS Safety Report 11352245 (Version 1)
Quarter: 2015Q3

REPORT INFORMATION
  Report Type: Spontaneous
  Country: US (occurrence: US)
  Receive Date: 20150807
  Receipt Date: 20150807
  Transmission Date: 20151125
  Serious: No
  Sender: FDA-Public Use
  Company Number: US-JNJFOC-20150321371

PATIENT
  Age: 67 Year
  Sex: Female
  Weight: 72.58 kg

DRUGS (4)
  1. DYAZIDE [Concomitant]
     Active Substance: HYDROCHLOROTHIAZIDE\TRIAMTERENE
     Indication: BLOOD PRESSURE MEASUREMENT
     Route: 065
  2. WOMENS ROGAINE UNSCENTED [Suspect]
     Active Substance: MINOXIDIL
     Indication: PRODUCT USED FOR UNKNOWN INDICATION
     Dosage: ONE HALF CAPFUL, AS DIRECTED
     Route: 061
     Dates: end: 20150320
  3. VITAMIN D [Concomitant]
     Active Substance: CHOLECALCIFEROL
     Indication: PRODUCT USED FOR UNKNOWN INDICATION
     Dosage: DURING WINTER ONLY
     Route: 065
  4. WOMENS ROGAINE UNSCENTED [Suspect]
     Active Substance: MINOXIDIL
     Indication: PRODUCT USED FOR UNKNOWN INDICATION
     Dosage: ONE HALF CAPFUL, AS DIRECTED
     Route: 061

REACTIONS (6)
  - Application site haemorrhage [Recovering/Resolving]
  - Seborrhoeic dermatitis [Recovering/Resolving]
  - Erythema [Recovered/Resolved]
  - Pruritus [Recovering/Resolving]
  - Skin irritation [Recovering/Resolving]
  - Tenderness [Not Recovered/Not Resolved]
